FAERS Safety Report 23603407 (Version 5)
Quarter: 2025Q2

REPORT INFORMATION
  Report Type: Report from Study
  Country: JP (occurrence: JP)
  Receive Date: 20240307
  Receipt Date: 20250402
  Transmission Date: 20250717
  Serious: Yes (Life-Threatening, Hospitalization, Other)
  Sender: GENMAB
  Company Number: JP-GENMAB-2024-00668

PATIENT
  Age: 67 Year
  Sex: Female
  Weight: 57 kg

DRUGS (5)
  1. EPKINLY [Suspect]
     Active Substance: EPCORITAMAB-BYSP
     Indication: Diffuse large B-cell lymphoma refractory
     Route: 058
     Dates: start: 20240208, end: 20240208
  2. EPKINLY [Suspect]
     Active Substance: EPCORITAMAB-BYSP
     Route: 058
     Dates: start: 20240215, end: 20240215
  3. PREDNISOLONE [Concomitant]
     Active Substance: PREDNISOLONE
     Indication: Prophylaxis
     Dates: start: 20240208, end: 20240216
  4. POLARAMINE [Concomitant]
     Active Substance: DEXCHLORPHENIRAMINE MALEATE
     Indication: Prophylaxis
     Dates: start: 20240208, end: 20240215
  5. ACETAMINOPHEN [Concomitant]
     Active Substance: ACETAMINOPHEN
     Indication: Prophylaxis
     Dates: start: 20240208, end: 20240215

REACTIONS (3)
  - Laryngeal oedema [Recovering/Resolving]
  - Cytokine release syndrome [Recovering/Resolving]
  - Dysphonia [Recovered/Resolved]

NARRATIVE: CASE EVENT DATE: 20240216
